FAERS Safety Report 9678439 (Version 1)
Quarter: 2013Q4

REPORT INFORMATION
  Report Type: Spontaneous
  Country: JP (occurrence: JP)
  Receive Date: 20131108
  Receipt Date: 20131108
  Transmission Date: 20140711
  Serious: Yes (Other)
  Sender: FDA-Public Use
  Company Number: JP-ASTRAZENECA-2013SE80724

PATIENT
  Age: 74 Year
  Sex: Female
  Weight: 43 kg

DRUGS (2)
  1. ANAPEINE [Suspect]
     Indication: EPIDURAL ANAESTHESIA
     Dosage: TOTAL OF 30 ML IN DIVIDED DOSES
     Route: 008
  2. ANAPEINE [Suspect]
     Indication: EPIDURAL ANAESTHESIA
     Dosage: 6 ML PER HOUR
     Route: 008

REACTIONS (2)
  - Extradural haematoma [Unknown]
  - Spinal cord infarction [Unknown]
